FAERS Safety Report 9841525 (Version 1)
Quarter: 2014Q1

REPORT INFORMATION
  Report Type: Spontaneous
  Country: GB (occurrence: GB)
  Receive Date: 20140124
  Receipt Date: 20140124
  Transmission Date: 20141002
  Serious: Yes (Other)
  Sender: FDA-Public Use
  Company Number: GB-PFIZER INC-2014019666

PATIENT
  Sex: 0

DRUGS (1)
  1. MORPHINE SULFATE [Suspect]
     Dosage: UNK
     Route: 065

REACTIONS (2)
  - Lip swelling [Unknown]
  - Anaphylactic reaction [Unknown]
